FAERS Safety Report 14632713 (Version 5)
Quarter: 2021Q2

REPORT INFORMATION
  Report Type: Spontaneous
  Country: US (occurrence: US)
  Receive Date: 20180313
  Receipt Date: 20210426
  Transmission Date: 20210716
  Serious: Yes (Hospitalization, Other)
  Sender: FDA-Public Use
  Company Number: US-PFIZER INC-2017030529

PATIENT
  Age: 64 Year
  Sex: Female
  Weight: 85 kg

DRUGS (2)
  1. XELJANZ XR [Suspect]
     Active Substance: TOFACITINIB CITRATE
     Dosage: 11 MG, 1X/DAY
     Dates: start: 20180416
  2. XELJANZ XR [Suspect]
     Active Substance: TOFACITINIB CITRATE
     Indication: RHEUMATOID ARTHRITIS
     Dosage: 11 MG, DAILY
     Dates: start: 2016, end: 20180224

REACTIONS (4)
  - Sciatica [Unknown]
  - Cauda equina syndrome [Recovering/Resolving]
  - Anal incontinence [Unknown]
  - Malaise [Unknown]
